FAERS Safety Report 16304522 (Version 2)
Quarter: 2019Q2

REPORT INFORMATION
  Report Type: Spontaneous
  Country: US (occurrence: US)
  Receive Date: 20190513
  Receipt Date: 20190531
  Transmission Date: 20190711
  Serious: No
  Sender: FDA-Public Use
  Company Number: US-PFIZER INC-2019200834

PATIENT
  Age: 60 Year
  Sex: Male

DRUGS (1)
  1. SUTENT [Suspect]
     Active Substance: SUNITINIB MALATE
     Dosage: 50 MG, CYCLIC (EVERY DAY WHOLE WITH WATER FOR 2 WEEKS ON AND 1 WEEK OFF)
     Route: 048
     Dates: start: 20190502

REACTIONS (2)
  - Fatigue [Unknown]
  - Product dose omission [Unknown]
